FAERS Safety Report 24815752 (Version 3)
Quarter: 2025Q1

REPORT INFORMATION
  Report Type: Spontaneous
  Country: US (occurrence: US)
  Receive Date: 20250107
  Receipt Date: 20250204
  Transmission Date: 20250409
  Serious: Yes (Other)
  Sender: PFIZER
  Company Number: US-PFIZER INC-202400335876

PATIENT
  Age: 58 Year
  Sex: Male
  Weight: 113.4 kg

DRUGS (6)
  1. BRAFTOVI [Suspect]
     Active Substance: ENCORAFENIB
     Indication: Malignant melanoma
     Dosage: 450 MG, 1X/DAY (WAS TAKING 6 IN THE MORNING AND NOW TAKING 4 IN THE MORNING)
     Route: 048
     Dates: start: 202410, end: 2024
  2. BRAFTOVI [Suspect]
     Active Substance: ENCORAFENIB
     Dosage: 300 MG, 1X/DAY (WAS TAKING 6 IN THE MORNING AND NOW TAKING 4 IN THE MORNING)
     Route: 048
     Dates: start: 2024
  3. MEKTOVI [Suspect]
     Active Substance: BINIMETINIB
     Indication: Malignant melanoma
     Dosage: 45 MG, 2X/DAY (WAS TAKING 3 TWICE A DAY AND NOW TAKING 2 TWICE A DAY)
     Route: 048
     Dates: start: 202410, end: 2024
  4. MEKTOVI [Suspect]
     Active Substance: BINIMETINIB
     Dosage: 30 MG, 2X/DAY (WAS TAKING 3 TWICE A DAY AND NOW TAKING 2 TWICE A DAY)
     Route: 048
     Dates: start: 2024
  5. LOSARTAN [Concomitant]
     Active Substance: LOSARTAN
     Indication: Hypertension
     Dates: start: 2021
  6. NIFEDIPINE [Concomitant]
     Active Substance: NIFEDIPINE
     Indication: Hypertension

REACTIONS (3)
  - Rash erythematous [Not Recovered/Not Resolved]
  - Sleep disorder due to a general medical condition [Unknown]
  - Weight decreased [Recovered/Resolved]

NARRATIVE: CASE EVENT DATE: 20240101
